FAERS Safety Report 7265032-7 (Version None)
Quarter: 2011Q1

REPORT INFORMATION
  Report Type: 
  Country: None (occurrence: None)
  Receive Date: 20110131
  Receipt Date: 20110121
  Transmission Date: 20110831
  Serious: Yes (Other)
  Sender: FDA-Public Use
  Company Number: US-ASTELLAS-2011US000427

PATIENT

DRUGS (1)
  1. VESICARE [Suspect]
     Indication: DRUG EXPOSURE DURING PREGNANCY
     Dosage: 5 MG, UNKNOWN/D
     Route: 048

REACTIONS (1)
  - GROWTH RETARDATION [None]
